FAERS Safety Report 7336117-1 (Version None)
Quarter: 2011Q1

REPORT INFORMATION
  Report Type: 
  Country: None (occurrence: None)
  Receive Date: 20110307
  Receipt Date: 20100726
  Transmission Date: 20110831
  Serious: Yes (Hospitalization)
  Sender: FDA-Public Use
  Company Number: DE-CEPHALON-2011001043

PATIENT
  Age: 82 Year
  Sex: Female
  Weight: 51 kg

DRUGS (4)
  1. MABTHERA [Suspect]
     Indication: NON-HODGKIN'S LYMPHOMA
     Route: 042
     Dates: start: 20091104, end: 20100304
  2. DEXAMETHASONE [Concomitant]
     Dates: start: 20091105, end: 20100205
  3. BENDAMUSTINE HCL [Suspect]
     Indication: NON-HODGKIN'S LYMPHOMA
     Route: 042
     Dates: start: 20091105, end: 20100205
  4. ONDANSETRON [Concomitant]
     Dates: start: 20091105, end: 20100205

REACTIONS (2)
  - C-REACTIVE PROTEIN INCREASED [None]
  - PNEUMONIA [None]
